FAERS Safety Report 12765459 (Version 3)
Quarter: 2016Q4

REPORT INFORMATION
  Report Type: Spontaneous
  Country: JP (occurrence: JP)
  Receive Date: 20160921
  Receipt Date: 20161010
  Transmission Date: 20170207
  Serious: Yes (Other)
  Sender: FDA-Public Use
  Company Number: JP-009507513-1609JPN008407

PATIENT
  Age: 81 Year
  Sex: Female

DRUGS (3)
  1. GLACTIV [Suspect]
     Active Substance: SITAGLIPTIN
     Indication: DIABETES MELLITUS
     Dosage: 12.5 MG, QD, DIVIDED DOSE FREQUENCY UNKNOWN, FORMULATION: POR
     Route: 048
     Dates: start: 201601
  2. PREDNISOLONE. [Concomitant]
     Active Substance: PREDNISOLONE
     Dosage: 10 MG, DIVIDED DOSE FREQUENCY UNKNOWN, FORMULATION: POR
     Route: 048
  3. PREDNISOLONE. [Concomitant]
     Active Substance: PREDNISOLONE
     Indication: POLYMYALGIA RHEUMATICA
     Dosage: 15 MG, QD, DIVIDED DOSE FREQUENCY UNKNOWN, FORMULATION: POR
     Route: 048

REACTIONS (1)
  - Seronegative arthritis [Recovering/Resolving]
